FAERS Safety Report 11801828 (Version 1)
Quarter: 2015Q4

REPORT INFORMATION
  Report Type: Spontaneous
  Country: US (occurrence: None)
  Receive Date: 20151203
  Receipt Date: 20151203
  Transmission Date: 20160305
  Serious: No
  Sender: FDA-Public Use
  Company Number: None

PATIENT
  Age: 63 Year
  Sex: Female
  Weight: 88 kg

DRUGS (13)
  1. SAVELLA [Suspect]
     Active Substance: MILNACIPRAN HYDROCHLORIDE
     Indication: FIBROMYALGIA
     Dosage: AT BEDTIME, TAKEN BY MOUTH
     Route: 048
  2. ALENDRONATE SODIUM. [Concomitant]
     Active Substance: ALENDRONATE SODIUM
  3. RESTASIS [Concomitant]
     Active Substance: CYCLOSPORINE
  4. VITAMIN D [Concomitant]
     Active Substance: CHOLECALCIFEROL
  5. HYDROCODONE BITARTRATE AND ACETAMINOPHEN [Concomitant]
     Active Substance: ACETAMINOPHEN\HYDROCODONE BITARTRATE
  6. SUPER B COMPLEX I-CAPS WITH LUTEIN + ZEAXANTHIN ULTRA MAGNESIUM (MAG CITRATE, LAURINATE, MALEATE, GLYCINATE + SUCCINATE) [Concomitant]
  7. ESTRACE [Concomitant]
     Active Substance: ESTRADIOL
  8. CYCLOBENZOPRINE [Concomitant]
     Active Substance: CYCLOBENZAPRINE
  9. OMEGA-3 ACIDS [Concomitant]
     Active Substance: OMEGA-3 FATTY ACIDS
  10. PROBIOTIC [Concomitant]
     Active Substance: PROBIOTICS NOS
  11. GABAPENTIN. [Concomitant]
     Active Substance: GABAPENTIN
  12. BIOTIN [Concomitant]
     Active Substance: BIOTIN
  13. GARLIC. [Concomitant]
     Active Substance: GARLIC

REACTIONS (3)
  - Increased appetite [None]
  - Drug ineffective [None]
  - Weight increased [None]
